FAERS Safety Report 16266726 (Version 2)
Quarter: 2020Q2

REPORT INFORMATION
  Report Type: Spontaneous
  Country: US (occurrence: US)
  Receive Date: 20190502
  Receipt Date: 20200504
  Transmission Date: 20200713
  Serious: Yes (Other)
  Sender: FDA-Public Use
  Company Number: US-PFIZER INC-2019183324

PATIENT
  Age: 62 Year
  Sex: Male
  Weight: 97.52 kg

DRUGS (2)
  1. VIAGRA [Suspect]
     Active Substance: SILDENAFIL CITRATE
     Indication: ERECTILE DYSFUNCTION
  2. VIAGRA [Suspect]
     Active Substance: SILDENAFIL CITRATE
     Indication: URINARY INCONTINENCE
     Dosage: 100 MG, 1X/DAY
     Route: 048
     Dates: end: 201812

REACTIONS (5)
  - Asbestosis [Unknown]
  - Depression [Unknown]
  - Insomnia [Not Recovered/Not Resolved]
  - Cough [Unknown]
  - General physical health deterioration [Unknown]
